FAERS Safety Report 25708270 (Version 1)
Quarter: 2025Q3

REPORT INFORMATION
  Report Type: Spontaneous
  Country: CN (occurrence: CN)
  Receive Date: 20250821
  Receipt Date: 20250821
  Transmission Date: 20251020
  Serious: Yes (Hospitalization, Other)
  Sender: HISUN PHARMACEUTICALS USA INC
  Company Number: CN-Hisun Pharmaceuticals USA Inc.-000607

PATIENT
  Age: 78 Year
  Sex: Male
  Weight: 65 kg

DRUGS (1)
  1. IRBESARTAN [Suspect]
     Active Substance: IRBESARTAN
     Indication: Hypertension
     Route: 048
     Dates: start: 20250729, end: 20250729

REACTIONS (5)
  - Hypokalaemia [Unknown]
  - Bradycardia [Unknown]
  - Asthenia [Unknown]
  - Hypovolaemic shock [Unknown]
  - Hypotension [Unknown]

NARRATIVE: CASE EVENT DATE: 20250729
